FAERS Safety Report 20712304 (Version 2)
Quarter: 2022Q2

REPORT INFORMATION
  Report Type: Report from Study
  Country: US (occurrence: US)
  Receive Date: 20220415
  Receipt Date: 20220513
  Transmission Date: 20220721
  Serious: No
  Sender: FDA-Public Use
  Company Number: US-ACADIA PHARMACEUTICALS INC.-ACA-2022-PIM-001011

PATIENT
  Sex: Female

DRUGS (8)
  1. NUPLAZID [Suspect]
     Active Substance: PIMAVANSERIN TARTRATE
     Indication: Parkinson^s disease psychosis
     Dosage: 34 MILLIGRAM, QD
     Route: 065
     Dates: start: 20220127, end: 20220317
  2. NUPLAZID [Suspect]
     Active Substance: PIMAVANSERIN TARTRATE
     Indication: Hallucination
     Dosage: 34 MILLIGRAM, QD
     Route: 048
     Dates: start: 20220322
  3. NUPLAZID [Suspect]
     Active Substance: PIMAVANSERIN TARTRATE
     Indication: Delusion
  4. BUPROPION [Concomitant]
     Active Substance: BUPROPION
     Dosage: 100 MILLIGRAM, QD
  5. SINEMET [Concomitant]
     Active Substance: CARBIDOPA\LEVODOPA
     Dosage: 25/100 MG TID
  6. SEROQUEL [Concomitant]
     Active Substance: QUETIAPINE FUMARATE
     Dosage: 25 MILLIGRAM, BID
  7. CRESTOR [Concomitant]
     Active Substance: ROSUVASTATIN CALCIUM
     Dosage: 10 MILLIGRAM, QD
  8. VITAMINS [Concomitant]
     Active Substance: VITAMINS
     Indication: Vitamin supplementation

REACTIONS (4)
  - Adverse drug reaction [Unknown]
  - Fatigue [Unknown]
  - Gait disturbance [Unknown]
  - Confusional state [Unknown]

NARRATIVE: CASE EVENT DATE: 20220101
